FAERS Safety Report 12987712 (Version 5)
Quarter: 2018Q1

REPORT INFORMATION
  Report Type: Report from Study
  Country: US (occurrence: US)
  Receive Date: 20161130
  Receipt Date: 20180314
  Transmission Date: 20180508
  Serious: Yes (Hospitalization, Other)
  Sender: FDA-Public Use
  Company Number: US-UCBSA-2016010155

PATIENT
  Age: 30 Year
  Sex: Male

DRUGS (4)
  1. CERTOLIZUMAB PEGOL [Suspect]
     Active Substance: CERTOLIZUMAB PEGOL
     Dosage: 400 MG, EV 3 WEEKS
     Dates: end: 2017
  2. CERTOLIZUMAB PEGOL [Suspect]
     Active Substance: CERTOLIZUMAB PEGOL
     Indication: CROHN^S DISEASE
     Dosage: 400 MG, EV 3 WEEKS
     Route: 058
     Dates: start: 20090611, end: 2016
  3. CERTOLIZUMAB PEGOL [Suspect]
     Active Substance: CERTOLIZUMAB PEGOL
     Dosage: 400 MG, EV 3 WEEKS  ( NDC # 50474-700-62)
     Route: 058
     Dates: start: 2016, end: 2016
  4. FLONASE [Concomitant]
     Active Substance: FLUTICASONE PROPIONATE
     Indication: SINUSITIS
     Dosage: UNK
     Dates: start: 2016

REACTIONS (6)
  - Sinusitis [Not Recovered/Not Resolved]
  - Inappropriate schedule of drug administration [Unknown]
  - Tonsillitis [Recovered/Resolved]
  - Intestinal obstruction [Recovered/Resolved]
  - Pyrexia [Recovered/Resolved]
  - Ear infection [Not Recovered/Not Resolved]

NARRATIVE: CASE EVENT DATE: 20090611
